FAERS Safety Report 17281326 (Version 1)
Quarter: 2020Q1

REPORT INFORMATION
  Report Type: Spontaneous
  Country: US (occurrence: US)
  Receive Date: 20200117
  Receipt Date: 20200117
  Transmission Date: 20200409
  Serious: No
  Sender: FDA-Public Use
  Company Number: US-AUROBINDO-AUR-APL-2018-059113

PATIENT

DRUGS (1)
  1. DEXTROAMPHET SACCHARAT, AMPHET ASPARTATE, DEXTROAMPHET SULFATE AND AMPHET SULFAT [Suspect]
     Active Substance: AMPHETAMINE ASPARTATE\AMPHETAMINE SULFATE\DEXTROAMPHETAMINE SACCHARATE\DEXTROAMPHETAMINE SULFATE
     Indication: PRODUCT USED FOR UNKNOWN INDICATION
     Dosage: 10 MILLIGRAM, DAILY
     Route: 065

REACTIONS (10)
  - Visual impairment [Unknown]
  - Feeling abnormal [Unknown]
  - Product physical issue [Unknown]
  - Toxicity to various agents [Unknown]
  - Lethargy [Unknown]
  - Influenza [Unknown]
  - Migraine [Unknown]
  - Palpitations [Unknown]
  - Dizziness [Unknown]
  - Drug ineffective [Unknown]
